FAERS Safety Report 4876804-8 (Version None)
Quarter: 2005Q4

REPORT INFORMATION
  Report Type: 
  Country: None (occurrence: None)
  Receive Date: 20051206
  Receipt Date: 20050823
  Transmission Date: 20060501
  Serious: No
  Sender: FDA-Public Use
  Company Number: USA0508106561

PATIENT
  Age: 30 Year
  Sex: Female

DRUGS (2)
  1. CYMBALTA [Suspect]
     Dosage: 30 MG
     Dates: start: 20050801, end: 20050801
  2. ANTIDEPRESSANTS [Concomitant]

REACTIONS (1)
  - RETCHING [None]
